FAERS Safety Report 5146672-8 (Version None)
Quarter: 2006Q4

REPORT INFORMATION
  Report Type: 
  Country: None (occurrence: None)
  Receive Date: 20061109
  Receipt Date: 20061027
  Transmission Date: 20070319
  Serious: Yes (Hospitalization)
  Sender: FDA-Public Use
  Company Number: PHBS2006CH16789

PATIENT
  Age: 60 Year
  Sex: Male

DRUGS (10)
  1. LESCOL [Suspect]
  2. PLAVIX [Suspect]
     Dosage: 75 MG/DAY
     Dates: start: 20060228
  3. SANDIMMUNE [Suspect]
     Dosage: 75 MG, BID
  4. PANTOZOL [Suspect]
     Dosage: 20 MG, BID
  5. ASPIRIN [Concomitant]
     Dosage: 100 MG/DAY
     Dates: start: 20060228
  6. CELLCEPT [Concomitant]
     Dosage: 750 MG, BID
  7. PREDNISONE TAB [Concomitant]
     Dosage: 7.5 MG/DAY
  8. NEURONTIN [Concomitant]
     Dosage: 600 MG, BID
  9. BELOC ZOK [Concomitant]
     Dosage: 50 MG, BID
  10. BETASERC [Concomitant]
     Dosage: 10 MG, BID

REACTIONS (8)
  - BLOOD CREATINE PHOSPHOKINASE INCREASED [None]
  - BLOOD LACTATE DEHYDROGENASE INCREASED [None]
  - DRUG INTERACTION [None]
  - HYPERKALAEMIA [None]
  - MYALGIA [None]
  - MYOGLOBIN BLOOD INCREASED [None]
  - RHABDOMYOLYSIS [None]
  - WRONG DRUG ADMINISTERED [None]
